FAERS Safety Report 9321304 (Version 2)
Quarter: 2013Q2

REPORT INFORMATION
  Report Type: Spontaneous
  Country: DE (occurrence: DE)
  Receive Date: 20130531
  Receipt Date: 20130613
  Transmission Date: 20140414
  Serious: Yes (Hospitalization, Other)
  Sender: FDA-Public Use
  Company Number: DE-US-EMD SERONO, INC.-7213306

PATIENT
  Age: 38 Year
  Sex: Female

DRUGS (5)
  1. CETROTIDE (CETRORELIX ACETATE FOR INJECTION) [Suspect]
     Indication: PREVENTION OF PREMATURE OVULATION
     Dosage: 3MG/3ML
     Route: 058
     Dates: start: 20130508, end: 20130508
  2. DOSTINEX [Suspect]
     Indication: OOCYTE HARVEST
     Route: 048
     Dates: start: 20130508, end: 20130513
  3. EXEMESTANE [Suspect]
     Indication: OOCYTE HARVEST
     Route: 048
     Dates: start: 20130508, end: 20130513
  4. FEMIBION                           /01597501/ [Concomitant]
     Indication: PREMEDICATION
     Route: 048
  5. THYRORAIOD [Concomitant]
     Indication: THYROIDECTOMY
     Route: 048
     Dates: start: 2011

REACTIONS (9)
  - Appendicitis [Recovered/Resolved]
  - Colitis [Recovered/Resolved]
  - Ascites [Not Recovered/Not Resolved]
  - Chest discomfort [Recovered/Resolved]
  - Hypotension [Recovered/Resolved]
  - Constipation [Recovered/Resolved]
  - Dyspnoea [Recovered/Resolved]
  - Vertigo [Recovered/Resolved]
  - Poor peripheral circulation [Recovered/Resolved]
